FAERS Safety Report 6811390-4 (Version None)
Quarter: 2010Q2

REPORT INFORMATION
  Report Type: 
  Country: None (occurrence: None)
  Receive Date: 20100630
  Receipt Date: 20100408
  Transmission Date: 20101027
  Serious: No
  Sender: FDA-Public Use
  Company Number: US-AMGEN-KDL405870

PATIENT
  Sex: Female
  Weight: 64.9 kg

DRUGS (2)
  1. PROCRIT [Suspect]
     Indication: RENAL FAILURE CHRONIC
     Dates: start: 20091021, end: 20100210
  2. UNSPECIFIED MEDICATION [Concomitant]
     Route: 042
     Dates: start: 20100120, end: 20100127

REACTIONS (1)
  - MALAISE [None]
